FAERS Safety Report 16055054 (Version 1)
Quarter: 2019Q1

REPORT INFORMATION
  Report Type: Spontaneous
  Country: US (occurrence: US)
  Receive Date: 20190310
  Receipt Date: 20190310
  Transmission Date: 20190418
  Serious: Yes (Hospitalization)
  Sender: FDA-Public Use
  Company Number: US-ALNYLAM PHARMACEUTICALS, INC.-ALN-2019-000141

PATIENT
  Age: 64 Year
  Sex: Male

DRUGS (7)
  1. ONPATTRO [Suspect]
     Active Substance: PATISIRAN SODIUM
     Indication: HEREDITARY NEUROPATHIC AMYLOIDOSIS
  2. AMIODARONE [Concomitant]
     Active Substance: AMIODARONE
     Route: 048
  3. PREDNISONE. [Concomitant]
     Active Substance: PREDNISONE
  4. VITAMIN A [Concomitant]
     Active Substance: VITAMIN A
  5. MORPHINE [Concomitant]
     Active Substance: MORPHINE
     Indication: PAIN
  6. MARINOL [Concomitant]
     Active Substance: DRONABINOL
     Indication: APPETITE DISORDER
  7. FLORINEF ACETATE [Concomitant]
     Active Substance: FLUDROCORTISONE ACETATE
     Indication: BLOOD PRESSURE MANAGEMENT
     Dosage: 0.3 MILLIGRAM, BID

REACTIONS (1)
  - Ventricular tachycardia [Unknown]

NARRATIVE: CASE EVENT DATE: 20190216
